FAERS Safety Report 7526036-X (Version None)
Quarter: 2011Q2

REPORT INFORMATION
  Report Type: 
  Country: None (occurrence: None)
  Receive Date: 20110526
  Receipt Date: 20110510
  Transmission Date: 20111010
  Serious: Yes (Death, Other)
  Sender: FDA-Public Use
  Company Number: 2009AP004380

PATIENT
  Age: 89 Year
  Sex: Female

DRUGS (16)
  1. IRON (IRON) [Concomitant]
  2. ROPINIROLE HYDROCHLORIDE [Suspect]
     Indication: PARKINSON'S DISEASE
     Dosage: 1 MG;PO;TID ;2 MG;PO;TID ; 3 MG;PO;QD
     Route: 048
     Dates: start: 20070918
  3. AMOXICILLIN TRIHYDRATE [Concomitant]
  4. CARBIMAZOLE (CARBIMAZOLE) [Concomitant]
  5. DIGOXIN [Concomitant]
  6. LEVODOPA (LEVODOPA) [Concomitant]
  7. SPARTEINE SULFATE (SPARTEINE SULFATE) [Concomitant]
  8. SINEMET [Concomitant]
  9. ACETYLSALICYLIC ACID (ACETYLSALICYLIC ACID) [Concomitant]
  10. BISOPROLOL FUMARATE [Concomitant]
  11. FORTISIP (FORTISIP) [Concomitant]
  12. RISPERIDONE [Suspect]
     Indication: PARKINSON'S DISEASE
     Dosage: 9 MG;PO
     Route: 048
  13. FUROSEMIDE [Concomitant]
  14. LACTULOSE [Concomitant]
  15. CARBIDOPA (CARBIDOPA) [Concomitant]
  16. ROPINIROLE [Concomitant]

REACTIONS (4)
  - WRONG DRUG ADMINISTERED [None]
  - MEDICATION ERROR [None]
  - GENERAL PHYSICAL HEALTH DETERIORATION [None]
  - OFF LABEL USE [None]
